FAERS Safety Report 14154099 (Version 11)
Quarter: 2018Q2

REPORT INFORMATION
  Report Type: Report from Study
  Country: IE (occurrence: IE)
  Receive Date: 20171102
  Receipt Date: 20180615
  Transmission Date: 20180711
  Serious: Yes (Hospitalization)
  Sender: FDA-Public Use
  Company Number: IE-PFIZER INC-2017465554

PATIENT
  Age: 45 Year
  Sex: Female
  Weight: 68 kg

DRUGS (8)
  1. LANSOPRAZOLE. [Concomitant]
     Active Substance: LANSOPRAZOLE
     Dosage: 30 MG, UNK
     Route: 048
     Dates: start: 20170909, end: 20171025
  2. SUNITINIB MALATE. [Suspect]
     Active Substance: SUNITINIB MALATE
     Dosage: 50 MG, CYCLIC (ONCE DAILY, 4 WEEKS AND THEN OFF TREATMENT FOR 2 WEEKS)
     Route: 048
     Dates: start: 20171030
  3. FLUCONAZOLE. [Concomitant]
     Active Substance: FLUCONAZOLE
     Dosage: 50 MG, UNK
     Route: 048
     Dates: start: 20170926, end: 20171003
  4. ALUMINIUM HYDROXIDE/DIPHENHYDRAMINE/MAGNESIUM HYDROXIDE/LIDOCAINE [Concomitant]
     Dosage: 1 DF, UNK
     Dates: start: 20170926
  5. SUNITINIB MALATE. [Suspect]
     Active Substance: SUNITINIB MALATE
     Indication: RENAL CELL CARCINOMA
     Dosage: 50 MG, CYCLIC (ONCE DAILY, 4 WEEKS AND THEN OFF TREATMENT FOR 2 WEEKS)
     Route: 048
     Dates: start: 20170828, end: 20170924
  6. ACETAMINOPHEN. [Concomitant]
     Active Substance: ACETAMINOPHEN
     Dosage: 1 G, UNK
     Route: 048
     Dates: start: 20170907
  7. VALOID [Concomitant]
     Active Substance: CYCLIZINE HYDROCHLORIDE
     Dosage: 50 MG, UNK
     Route: 048
     Dates: start: 20170907
  8. SUNITINIB MALATE. [Suspect]
     Active Substance: SUNITINIB MALATE
     Dosage: 50 MG, CYCLIC (ONCE DAILY, 4 WEEKS AND THEN OFF TREATMENT FOR 2 WEEKS)
     Route: 048
     Dates: start: 20171009, end: 20171021

REACTIONS (2)
  - Dysphagia [Recovered/Resolved]
  - Diarrhoea [Recovered/Resolved]

NARRATIVE: CASE EVENT DATE: 20171017
